FAERS Safety Report 20098988 (Version 2)
Quarter: 2022Q2

REPORT INFORMATION
  Report Type: Spontaneous
  Country: US (occurrence: US)
  Receive Date: 20211122
  Receipt Date: 20220504
  Transmission Date: 20220721
  Serious: Yes (Other)
  Sender: FDA-Public Use
  Company Number: US-PFIZER INC-202101227335

PATIENT
  Age: 37 Year
  Sex: Male
  Weight: 82.177 kg

DRUGS (6)
  1. XELJANZ [Suspect]
     Active Substance: TOFACITINIB CITRATE
     Indication: Illness
     Dosage: 10 MG, 2X/DAY
     Route: 048
  2. ACETAMINOPHEN\HYDROCODONE [Concomitant]
     Active Substance: ACETAMINOPHEN\HYDROCODONE
     Dosage: UNK
  3. TRAMADOL HCL [Concomitant]
     Active Substance: TRAMADOL HYDROCHLORIDE
     Dosage: UNK (100% POWDER)
  4. PANTOPRAZOLE [Concomitant]
     Active Substance: PANTOPRAZOLE
  5. FISH OIL [Concomitant]
     Active Substance: FISH OIL
  6. ASIAN GINSENG [Concomitant]
     Active Substance: ASIAN GINSENG

REACTIONS (4)
  - Colitis ulcerative [Not Recovered/Not Resolved]
  - Hunger [Unknown]
  - Blood iron decreased [Not Recovered/Not Resolved]
  - Therapeutic product effect incomplete [Not Recovered/Not Resolved]
